FAERS Safety Report 11984759 (Version 1)
Quarter: 2016Q1

REPORT INFORMATION
  Report Type: Spontaneous
  Country: RU (occurrence: RU)
  Receive Date: 20160201
  Receipt Date: 20160201
  Transmission Date: 20160526
  Serious: Yes (Life-Threatening)
  Sender: FDA-Public Use
  Company Number: RU-BAYER-2016-013497

PATIENT
  Age: 56 Year
  Sex: Female

DRUGS (1)
  1. ASPIRIN CARDIO [Suspect]
     Active Substance: ASPIRIN

REACTIONS (2)
  - Bronchospasm [Recovered/Resolved]
  - Urticaria [Recovered/Resolved]
